FAERS Safety Report 15555420 (Version 2)
Quarter: 2018Q4

REPORT INFORMATION
  Report Type: Spontaneous
  Country: US (occurrence: US)
  Receive Date: 20181026
  Receipt Date: 20181119
  Transmission Date: 20190205
  Serious: Yes (Hospitalization)
  Sender: FDA-Public Use
  Company Number: US-VERTEX PHARMACEUTICALS-2018-007610

PATIENT
  Age: 45 Year
  Sex: Male

DRUGS (16)
  1. AMICAR [Concomitant]
     Active Substance: AMINOCAPROIC ACID
  2. CIPROFLOXACIN. [Concomitant]
     Active Substance: CIPROFLOXACIN
  3. NOVOLOG [Concomitant]
     Active Substance: INSULIN ASPART
  4. SYMDEKO [Suspect]
     Active Substance: IVACAFTOR\TEZACAFTOR
     Indication: CYSTIC FIBROSIS
     Dosage: 100 MG TEZACAFTOR/ 150 MG IVACAFTOR AM; 150 MG IVACAFTOR PM
     Route: 048
     Dates: start: 20180405
  5. PULMOZYME [Concomitant]
     Active Substance: DORNASE ALFA
  6. VENTOLIN [Concomitant]
     Active Substance: ALBUTEROL SULFATE
  7. CREON [Concomitant]
     Active Substance: PANCRELIPASE AMYLASE\PANCRELIPASE LIPASE\PANCRELIPASE PROTEASE
  8. ONDANSETRON [Concomitant]
     Active Substance: ONDANSETRON
  9. ALBUTEROL                          /00139501/ [Concomitant]
     Active Substance: ALBUTEROL
  10. METOPROLOL. [Concomitant]
     Active Substance: METOPROLOL
  11. SMZ-TMP [Concomitant]
     Active Substance: SULFAMETHOXAZOLE\TRIMETHOPRIM
  12. TOUJEO [Concomitant]
     Active Substance: INSULIN GLARGINE
  13. FLUTICASONE. [Concomitant]
     Active Substance: FLUTICASONE
  14. CAYSTON [Concomitant]
     Active Substance: AZTREONAM
  15. ENULOSE [Concomitant]
     Active Substance: LACTULOSE
  16. OMEPRAZOLE. [Concomitant]
     Active Substance: OMEPRAZOLE

REACTIONS (1)
  - Haemoptysis [Unknown]

NARRATIVE: CASE EVENT DATE: 20180920
